FAERS Safety Report 10668496 (Version 1)
Quarter: 2014Q4

REPORT INFORMATION
  Report Type: Spontaneous
  Country: US (occurrence: US)
  Receive Date: 20141222
  Receipt Date: 20141222
  Transmission Date: 20150529
  Serious: No
  Sender: FDA-Public Use
  Company Number: US-BAYER-2014-187526

PATIENT

DRUGS (2)
  1. MIDOL [Suspect]
     Active Substance: IBUPROFEN
     Indication: MUSCLE SPASMS
     Dosage: 2 DF, Q4HR
     Route: 048
  2. ALEVE [Suspect]
     Active Substance: NAPROXEN SODIUM
     Indication: MUSCLE SPASMS
     Dosage: 1 DF, Q4HR
     Route: 048

REACTIONS (2)
  - Extra dose administered [None]
  - Inappropriate schedule of drug administration [None]
